FAERS Safety Report 7008132-9 (Version None)
Quarter: 2010Q3

REPORT INFORMATION
  Report Type: 
  Country: None (occurrence: None)
  Receive Date: 20100916
  Receipt Date: 20100910
  Transmission Date: 20110219
  Serious: Yes (Hospitalization)
  Sender: FDA-Public Use
  Company Number: 2009SP030580

PATIENT
  Age: 7 Year
  Sex: Female
  Weight: 19.9 kg

DRUGS (6)
  1. PEG-INTRON [Suspect]
     Indication: BONE SARCOMA
     Dosage: SC
     Route: 058
     Dates: start: 20090710, end: 20091002
  2. DOXORUBICIN HCL [Suspect]
     Indication: BONE SARCOMA
     Dosage: INDRP
     Route: 041
     Dates: start: 20081128, end: 20090627
  3. CISPLATIN [Suspect]
     Indication: BONE SARCOMA
     Dosage: 90 MG
     Dates: start: 20081128, end: 20090410
  4. METHOTREXATE [Suspect]
     Indication: BONE SARCOMA
     Dosage: 9700 MG
     Dates: start: 20081220, end: 20090704
  5. PARACETAMOL [Concomitant]
  6. CARMELLOSE [Concomitant]

REACTIONS (5)
  - DYSPNOEA [None]
  - MITRAL VALVE INCOMPETENCE [None]
  - PERICARDIAL EFFUSION [None]
  - TACHYCARDIA [None]
  - TACHYPNOEA [None]
